FAERS Safety Report 16659921 (Version 1)
Quarter: 2019Q3

REPORT INFORMATION
  Report Type: Spontaneous
  Country: FR (occurrence: FR)
  Receive Date: 20190802
  Receipt Date: 20190802
  Transmission Date: 20191004
  Serious: Yes (Hospitalization)
  Sender: FDA-Public Use
  Company Number: FR-ROCHE-2366551

PATIENT
  Sex: Male
  Weight: 81 kg

DRUGS (14)
  1. ZELITREX [Interacting]
     Active Substance: VALACYCLOVIR HYDROCHLORIDE
     Indication: OPHTHALMIC HERPES ZOSTER
     Route: 048
     Dates: start: 201706, end: 20190705
  2. INSULIN [Concomitant]
     Active Substance: INSULIN NOS
     Route: 058
  3. BISOPROLOL FUMARATE. [Concomitant]
     Active Substance: BISOPROLOL FUMARATE
     Route: 048
  4. LANTUS [Concomitant]
     Active Substance: INSULIN GLARGINE
  5. LUCENTIS [Concomitant]
     Active Substance: RANIBIZUMAB
     Route: 031
     Dates: start: 201711
  6. PREDNISONE. [Concomitant]
     Active Substance: PREDNISONE
     Route: 048
  7. ASPIRINE PROTECT [Concomitant]
     Active Substance: ASPIRIN
     Route: 048
  8. UVEDOSE [Concomitant]
     Active Substance: CHOLECALCIFEROL
     Route: 048
  9. ESOMEPRAZOLE. [Concomitant]
     Active Substance: ESOMEPRAZOLE MAGNESIUM
     Route: 048
  10. TAHOR [Concomitant]
     Active Substance: ATORVASTATIN CALCIUM
     Route: 048
  11. CELLCEPT [Suspect]
     Active Substance: MYCOPHENOLATE MOFETIL\MYCOPHENOLATE MOFETIL HYDROCHLORIDE
     Indication: RENAL TRANSPLANT
     Route: 048
     Dates: start: 2003, end: 20190705
  12. AMLODIPINE [Concomitant]
     Active Substance: AMLODIPINE BESYLATE
     Route: 048
  13. ALLOPURINOL. [Concomitant]
     Active Substance: ALLOPURINOL
     Route: 048
  14. CICLOSPORINE [Concomitant]
     Active Substance: CYCLOSPORINE
     Route: 048

REACTIONS (2)
  - Drug interaction [Recovered/Resolved]
  - Neutropenia [Recovered/Resolved]

NARRATIVE: CASE EVENT DATE: 201706
